FAERS Safety Report 15570865 (Version 1)
Quarter: 2018Q4

REPORT INFORMATION
  Report Type: Report from Study
  Country: US (occurrence: US)
  Receive Date: 20181031
  Receipt Date: 20181031
  Transmission Date: 20190205
  Serious: Yes (Death, Hospitalization, Other)
  Sender: FDA-Public Use
  Company Number: US-SA-2018SA283364

PATIENT
  Age: 64 Year
  Sex: Male
  Weight: 99.7 kg

DRUGS (8)
  1. ALEMTUZUMAB [Suspect]
     Active Substance: ALEMTUZUMAB
     Indication: MULTIPLE SCLEROSIS
     Dosage: 12 UNK
     Route: 041
     Dates: start: 20180220, end: 20180222
  2. PREDNISONE. [Concomitant]
     Active Substance: PREDNISONE
     Dosage: UNK
  3. ALEMTUZUMAB [Suspect]
     Active Substance: ALEMTUZUMAB
     Dosage: 12 MG, QD
     Route: 041
     Dates: start: 20170213, end: 20170217
  4. BACLOFEN. [Concomitant]
     Active Substance: BACLOFEN
  5. AMPYRA [Concomitant]
     Active Substance: DALFAMPRIDINE
  6. RITUXAN [Concomitant]
     Active Substance: RITUXIMAB
  7. VITAMIN D [Concomitant]
     Active Substance: CHOLECALCIFEROL
  8. PANTOPRAZOLE [Concomitant]
     Active Substance: PANTOPRAZOLE

REACTIONS (2)
  - Immune thrombocytopenic purpura [Unknown]
  - Death [Fatal]

NARRATIVE: CASE EVENT DATE: 201805
